FAERS Safety Report 7070937-6 (Version None)
Quarter: 2010Q4

REPORT INFORMATION
  Report Type: 
  Country: None (occurrence: None)
  Receive Date: 20101027
  Receipt Date: 20101027
  Transmission Date: 20110411
  Serious: No
  Sender: FDA-Public Use
  Company Number: None

PATIENT
  Age: 9 Year
  Sex: Female
  Weight: 58.9676 kg

DRUGS (1)
  1. HYLAND'S BEDWETTING TABLETS N/A P+S LABORATORIES [Suspect]
     Indication: ENURESIS
     Dosage: 3 TABLES 3X A DAY PO
     Route: 048
     Dates: start: 20100923, end: 20101026

REACTIONS (1)
  - AGITATION [None]
